FAERS Safety Report 11843775 (Version 2)
Quarter: 2016Q1

REPORT INFORMATION
  Report Type: Spontaneous
  Country: US (occurrence: US)
  Receive Date: 20151217
  Receipt Date: 20160127
  Transmission Date: 20160526
  Serious: No
  Sender: FDA-Public Use
  Company Number: PHEH2015US025680

PATIENT
  Age: 76 Year
  Sex: Male
  Weight: 68.27 kg

DRUGS (1)
  1. RIVASTIGMINE. [Suspect]
     Active Substance: RIVASTIGMINE
     Indication: DEMENTIA
     Dosage: 4.6 MG, QD
     Route: 062
     Dates: start: 201503, end: 20151115

REACTIONS (4)
  - Application site rash [Recovered/Resolved]
  - Application site erythema [Recovered/Resolved]
  - Application site irritation [Unknown]
  - Pruritus [Unknown]

NARRATIVE: CASE EVENT DATE: 201511
